FAERS Safety Report 8025956-X (Version None)
Quarter: 2012Q1

REPORT INFORMATION
  Report Type: 
  Country: None (occurrence: None)
  Receive Date: 20120105
  Receipt Date: 20110908
  Transmission Date: 20120608
  Serious: No
  Sender: FDA-Public Use
  Company Number: US-ABBOTT-11P-163-0853885-00

PATIENT
  Sex: Female
  Weight: 67.192 kg

DRUGS (3)
  1. SYNTHROID [Suspect]
     Indication: THYROID HORMONE REPLACEMENT THERAPY
     Dates: start: 20040101
  2. METAMUCIL-2 [Suspect]
     Indication: BOWEL MOVEMENT IRREGULARITY
     Dates: start: 20110401
  3. VESICARE [Concomitant]
     Indication: HYPERTONIC BLADDER

REACTIONS (1)
  - BLOOD THYROID STIMULATING HORMONE INCREASED [None]
